FAERS Safety Report 6774961-X (Version None)
Quarter: 2010Q2

REPORT INFORMATION
  Report Type: 
  Country: None (occurrence: None)
  Receive Date: 20100617
  Receipt Date: 20100609
  Transmission Date: 20101027
  Serious: Yes (Other)
  Sender: FDA-Public Use
  Company Number: PHHY2010US38219

PATIENT
  Sex: Male

DRUGS (1)
  1. FOCALIN XR [Suspect]
     Dosage: 5 MG, UNK
     Dates: start: 20100524

REACTIONS (2)
  - ABNORMAL BEHAVIOUR [None]
  - HALLUCINATION [None]
